FAERS Safety Report 23896934 (Version 1)
Quarter: 2024Q2

REPORT INFORMATION
  Report Type: Spontaneous
  Country: GB (occurrence: GB)
  Receive Date: 20240524
  Receipt Date: 20240524
  Transmission Date: 20240716
  Serious: Yes (Other)
  Sender: FDA-Public Use
  Company Number: GB-PFIZER INC-202400174729

PATIENT
  Age: 2 Year
  Sex: Male

DRUGS (4)
  1. BORTEZOMIB [Interacting]
     Active Substance: BORTEZOMIB
     Indication: Autoimmune haemolytic anaemia
     Dosage: UNK (TWO DOSES)
     Route: 042
  2. ABATACEPT [Interacting]
     Active Substance: ABATACEPT
     Indication: Autoimmune haemolytic anaemia
     Dosage: UNK (LOADING COURSE)
     Route: 042
  3. DARATUMUMAB [Interacting]
     Active Substance: DARATUMUMAB
     Indication: Autoimmune haemolytic anaemia
     Dosage: UNK
     Route: 042
  4. SIROLIMUS [Concomitant]
     Active Substance: SIROLIMUS
     Indication: Autoimmune haemolytic anaemia
     Dosage: UNK

REACTIONS (3)
  - Gastrointestinal haemorrhage [Unknown]
  - Drug interaction [Unknown]
  - Off label use [Unknown]
